FAERS Safety Report 4802592-7 (Version None)
Quarter: 2005Q4

REPORT INFORMATION
  Report Type: 
  Country: None (occurrence: None)
  Receive Date: 20051014
  Receipt Date: 20050329
  Transmission Date: 20060501
  Serious: Yes (Other)
  Sender: FDA-Public Use
  Company Number: 2005036391

PATIENT
  Age: 44 Year
  Sex: Female

DRUGS (10)
  1. NEURONTIN [Suspect]
     Indication: ANXIETY
     Dosage: 400 MG (100 MG, 4 IN 1 D), ORAL
     Route: 048
     Dates: start: 20030201
  2. NEURONTIN [Suspect]
     Indication: MOOD ALTERED
     Dosage: 400 MG (100 MG, 4 IN 1 D), ORAL
     Route: 048
     Dates: start: 20030201
  3. DULOXETINE HYDROCHLORIDE (DULOXETINE HYDROCHLORIDE) [Suspect]
     Indication: ILL-DEFINED DISORDER
     Dosage: 40 MG 40 MG, 1 IN 1 D)
  4. ETHANOL (ETHANOL) [Suspect]
     Indication: ILL-DEFINED DISORDER
  5. TRAZODONE HCL [Concomitant]
  6. LITHIUM (LITHIUM) [Concomitant]
  7. LAMOTRIGINE [Concomitant]
  8. DICLOFENAC (DICLOFENAC) [Concomitant]
  9. BUPROPION HYDROCHLORIDE [Concomitant]
  10. QUETIAPINE FUMARATE [Concomitant]

REACTIONS (3)
  - CONFUSIONAL STATE [None]
  - PSYCHOTIC DISORDER [None]
  - ROAD TRAFFIC ACCIDENT [None]
